FAERS Safety Report 5743596-X (Version None)
Quarter: 2008Q2

REPORT INFORMATION
  Report Type: 
  Country: None (occurrence: None)
  Receive Date: 20080520
  Receipt Date: 20080507
  Transmission Date: 20081010
  Serious: Yes (Other)
  Sender: FDA-Public Use
  Company Number: PHHY2008GB07802

PATIENT

DRUGS (1)
  1. EXELON [Suspect]
     Dosage: 9.5 MG, UNK

REACTIONS (1)
  - FALL [None]
